FAERS Safety Report 5597551-3 (Version None)
Quarter: 2008Q1

REPORT INFORMATION
  Report Type: 
  Country: None (occurrence: None)
  Receive Date: 20080121
  Receipt Date: 20080117
  Transmission Date: 20080703
  Serious: Yes (Other)
  Sender: FDA-Public Use
  Company Number: IE-WYE-G00909708

PATIENT
  Age: 23 Year
  Sex: Male

DRUGS (1)
  1. TAZOCIN [Suspect]
     Dosage: UNKNOWN
     Dates: start: 20071201

REACTIONS (4)
  - ABDOMINAL PAIN [None]
  - BUDD-CHIARI SYNDROME [None]
  - LIVER FUNCTION TEST ABNORMAL [None]
  - PARAESTHESIA [None]
